FAERS Safety Report 6124129-5 (Version None)
Quarter: 2009Q1

REPORT INFORMATION
  Report Type: 
  Country: None (occurrence: None)
  Receive Date: 20090319
  Receipt Date: 20090310
  Transmission Date: 20090719
  Serious: Yes (Hospitalization)
  Sender: FDA-Public Use
  Company Number: IT-ROCHE-620317

PATIENT
  Sex: Female

DRUGS (7)
  1. TORADOL [Suspect]
     Dosage: DOSAGE REPORTED AS DIE.
     Route: 030
     Dates: start: 20090223, end: 20090224
  2. ASPIRIN [Suspect]
     Indication: ANTICOAGULANT THERAPY
     Dosage: DOSAGE REPORTED AS DIE.
     Route: 048
     Dates: start: 19890101, end: 20090224
  3. VIVIN C (ITALY) [Suspect]
     Dosage: DOSAGE REPORTED AS DIE.
     Route: 048
     Dates: start: 20090224, end: 20090224
  4. CARDURA [Concomitant]
     Dosage: DOSAGE REPORTED AS DIE.
     Route: 048
     Dates: start: 20090224, end: 20090225
  5. ZYLORIC [Concomitant]
     Dosage: DOSAGE REPORTED AS DIE.
     Route: 048
     Dates: start: 20090224, end: 20090225
  6. LOBIVON [Concomitant]
     Route: 048
     Dates: start: 20090224, end: 20090225
  7. ANTRA [Concomitant]
     Dosage: DOSE REPORTED AS 2 VIALS 40MG IN 500CC OF PHYSIOLOGICAL SOLUTION.

REACTIONS (3)
  - DUODENAL ULCER [None]
  - EROSIVE DUODENITIS [None]
  - GASTRITIS EROSIVE [None]
